FAERS Safety Report 6734943-0 (Version None)
Quarter: 2010Q2

REPORT INFORMATION
  Report Type: 
  Country: None (occurrence: None)
  Receive Date: 20100521
  Receipt Date: 20100517
  Transmission Date: 20101027
  Serious: Yes (Other)
  Sender: FDA-Public Use
  Company Number: US-PFIZER INC-2010062549

PATIENT
  Sex: Male
  Weight: 87.075 kg

DRUGS (5)
  1. DETROL [Suspect]
     Indication: HYPERTONIC BLADDER
     Dosage: 4 MG, 1X/DAY
     Route: 048
     Dates: start: 20100412, end: 20100513
  2. TRIAMTERENE AND HYDROCHLOROTHIAZIDE [Concomitant]
     Dosage: ONCE A DAY IN MORNING
  3. SIMVASTATIN [Concomitant]
     Dosage: 20 MG, ONCE A DAY IN THE MORNING
  4. DILTIAZEM [Concomitant]
     Dosage: 240 MG, ONCE A DAY IN THE MORNING
  5. SERTRALINE [Concomitant]
     Dosage: 50 MG, ONCE A DAY AT NIGHT

REACTIONS (2)
  - MICTURITION URGENCY [None]
  - URINARY INCONTINENCE [None]
